FAERS Safety Report 19834523 (Version 1)
Quarter: 2021Q3

REPORT INFORMATION
  Report Type: Report from Study
  Country: CA (occurrence: CA)
  Receive Date: 20210914
  Receipt Date: 20210914
  Transmission Date: 20211014
  Serious: Yes (Other)
  Sender: FDA-Public Use
  Company Number: CA-TAKEDA-2019TUS033899

PATIENT
  Age: 59 Year
  Sex: Male

DRUGS (5)
  1. VEDOLIZUMAB [Suspect]
     Active Substance: VEDOLIZUMAB
     Dosage: 300 MILLIGRAM, Q4WEEKS
     Route: 042
     Dates: start: 20191218
  2. VEDOLIZUMAB [Suspect]
     Active Substance: VEDOLIZUMAB
     Dosage: 300 MILLIGRAM, Q4WEEKS
     Route: 042
  3. VEDOLIZUMAB [Suspect]
     Active Substance: VEDOLIZUMAB
     Indication: COLITIS ULCERATIVE
     Dosage: 300 MILLIGRAM
     Route: 042
     Dates: start: 20180206
  4. ENTOCORT [Concomitant]
     Active Substance: BUDESONIDE
     Dosage: 3 MILLIGRAM
  5. CORTIFOAM [Concomitant]
     Active Substance: HYDROCORTISONE ACETATE
     Dosage: 10 PERCENT (INTRA RECTAL)
     Dates: start: 201709

REACTIONS (9)
  - Haematochezia [Not Recovered/Not Resolved]
  - Defaecation urgency [Unknown]
  - Mucous stools [Unknown]
  - Coeliac disease [Not Recovered/Not Resolved]
  - Flatulence [Unknown]
  - Fatigue [Unknown]
  - Off label use [Unknown]
  - Frequent bowel movements [Unknown]
  - Abdominal pain [Unknown]

NARRATIVE: CASE EVENT DATE: 201905
